FAERS Safety Report 16611236 (Version 2)
Quarter: 2019Q3

REPORT INFORMATION
  Report Type: Spontaneous
  Country: US (occurrence: US)
  Receive Date: 20190722
  Receipt Date: 20190919
  Transmission Date: 20191004
  Serious: Yes (Other)
  Sender: FDA-Public Use
  Company Number: US-PFIZER INC-2019308916

PATIENT
  Age: 72 Year
  Sex: Female
  Weight: 68.4 kg

DRUGS (2)
  1. ROBITUSSIN COUGH AND CHEST CONGESTION DM MAX [Suspect]
     Active Substance: DEXTROMETHORPHAN HYDROBROMIDE\GUAIFENESIN
     Indication: HYPERSENSITIVITY
  2. ROBITUSSIN COUGH AND CHEST CONGESTION DM MAX [Suspect]
     Active Substance: DEXTROMETHORPHAN HYDROBROMIDE\GUAIFENESIN
     Indication: COUGH
     Dosage: THE STANDARD 20ML ONCE (EVERY 4 DEGREE)
     Route: 048
     Dates: start: 20190711, end: 20190711

REACTIONS (7)
  - Cough [Unknown]
  - Weight increased [Unknown]
  - Reaction to excipient [Recovered/Resolved]
  - Choking [Unknown]
  - Product taste abnormal [Unknown]
  - Retching [Unknown]
  - Nausea [Recovering/Resolving]

NARRATIVE: CASE EVENT DATE: 201907
